FAERS Safety Report 9457396 (Version 2)
Quarter: 2013Q3

REPORT INFORMATION
  Report Type: Spontaneous
  Country: US (occurrence: US)
  Receive Date: 20130814
  Receipt Date: 20130815
  Transmission Date: 20140515
  Serious: No
  Sender: FDA-Public Use
  Company Number: US-009507513-1308USA002813

PATIENT
  Sex: Male

DRUGS (1)
  1. AZASITE [Suspect]
     Dosage: 1 GTT, HS (INSTILL 1 DROP TO EACH EYE ONCE DAILY AT NIGHTTIME)
     Route: 047
     Dates: start: 20130729

REACTIONS (5)
  - Drug dose omission [Unknown]
  - Drug administration error [Unknown]
  - Inappropriate schedule of drug administration [Unknown]
  - Underdose [Unknown]
  - No adverse event [Unknown]
